FAERS Safety Report 12337124 (Version 7)
Quarter: 2019Q2

REPORT INFORMATION
  Report Type: Report from Study
  Country: BR (occurrence: BR)
  Receive Date: 20160505
  Receipt Date: 20190612
  Transmission Date: 20190711
  Serious: Yes (Other)
  Sender: FDA-Public Use
  Company Number: PHHY2016BR061275

PATIENT
  Age: 68 Year
  Sex: Male
  Weight: 103 kg

DRUGS (4)
  1. SANDOSTATIN LAR DEPOT [Suspect]
     Active Substance: OCTREOTIDE ACETATE
     Indication: ACROMEGALY
     Dosage: 30 MG, QMO (EVERY 28 DAYS)
     Route: 030
     Dates: start: 20050201
  2. INFLUENZA VACCINE [Concomitant]
     Active Substance: INFLUENZA VIRUS VACCINE
     Indication: PRODUCT USED FOR UNKNOWN INDICATION
     Route: 065
  3. GALVUS MET [Concomitant]
     Active Substance: METFORMIN HYDROCHLORIDE\VILDAGLIPTIN
     Indication: DIABETES MELLITUS
     Dosage: 2 DF, QD (FOR 3 YEARS)
     Route: 048
  4. PARACETAMOL [Suspect]
     Active Substance: ACETAMINOPHEN
     Indication: PRODUCT USED FOR UNKNOWN INDICATION
     Route: 065

REACTIONS (16)
  - Visual acuity reduced [Recovering/Resolving]
  - Weight decreased [Recovering/Resolving]
  - Discomfort [Unknown]
  - Blood pressure fluctuation [Unknown]
  - Influenza [Unknown]
  - Growth retardation [Unknown]
  - Diabetes mellitus [Recovering/Resolving]
  - Retinal disorder [Not Recovered/Not Resolved]
  - Hypertension [Recovering/Resolving]
  - Diabetes mellitus inadequate control [Unknown]
  - Sluggishness [Unknown]
  - Visual impairment [Unknown]
  - Malaise [Unknown]
  - Insulin-like growth factor increased [Unknown]
  - Rhinitis [Unknown]
  - Drug ineffective [Unknown]

NARRATIVE: CASE EVENT DATE: 2005
